FAERS Safety Report 20492984 (Version 1)
Quarter: 2022Q1

REPORT INFORMATION
  Report Type: Spontaneous
  Country: US (occurrence: US)
  Receive Date: 20220219
  Receipt Date: 20220219
  Transmission Date: 20220424
  Serious: No
  Sender: FDA-Public Use
  Company Number: US-JNJFOC-20220229000

PATIENT
  Sex: Male

DRUGS (2)
  1. ZYTIGA [Suspect]
     Active Substance: ABIRATERONE ACETATE
     Indication: Product used for unknown indication
     Route: 048
  2. RELUGOLIX [Suspect]
     Active Substance: RELUGOLIX
     Indication: Prostate cancer
     Route: 065

REACTIONS (1)
  - Blood testosterone increased [Unknown]
